FAERS Safety Report 9849666 (Version 4)
Quarter: 2014Q2

REPORT INFORMATION
  Report Type: Spontaneous
  Country: US (occurrence: US)
  Receive Date: 20140128
  Receipt Date: 20140428
  Transmission Date: 20141212
  Serious: No
  Sender: FDA-Public Use
  Company Number: US-PFIZER INC-2014022610

PATIENT
  Age: 64 Year
  Sex: Male

DRUGS (14)
  1. INLYTA [Suspect]
     Indication: RENAL CANCER
     Dosage: 5 MG, 2X/DAY
     Route: 048
     Dates: start: 20131010, end: 20140114
  2. HYDROCHLOROTHIAZIDE [Concomitant]
     Indication: BLOOD PRESSURE INCREASED
     Dosage: UNK
     Dates: start: 20130131
  3. LISINOPRIL [Concomitant]
     Indication: BLOOD PRESSURE INCREASED
     Dosage: UNK
     Route: 048
     Dates: start: 20130131
  4. LISINOPRIL [Concomitant]
     Dosage: 5 MG, DAILY AS NEEDED
     Route: 048
     Dates: start: 20130829
  5. CARMOL [Concomitant]
     Dosage: UNK, PRN
     Route: 061
     Dates: start: 20130122
  6. CEPHALEXIN [Concomitant]
     Dosage: UNK
     Dates: start: 20130625
  7. CLINDAMYCIN PHOSPHATE [Concomitant]
     Dosage: UNK
     Dates: start: 20121024
  8. DIPHENHYDRAMINE [Concomitant]
     Dosage: UNK
     Dates: start: 20121024
  9. ONDANSETRON [Concomitant]
     Dosage: UNK
     Dates: start: 20121024
  10. POTASSIUM CHLORIDE [Concomitant]
     Dosage: UNK
     Dates: start: 20130522
  11. CLARITIN [Concomitant]
     Dosage: 10 MG, DAILY
     Route: 048
     Dates: start: 20130403
  12. TYLENOL ARTHRITIS [Concomitant]
     Indication: PAIN
     Dosage: 1300 MG, AS NEEDED
     Route: 048
     Dates: start: 20130723
  13. LEVOFLOXACIN [Concomitant]
     Dosage: 750 MG, DAILY FOR 10 DAYS
     Route: 048
     Dates: start: 20131017, end: 20140124
  14. ALEVE [Concomitant]
     Dosage: 2 DF, AS NEEDED
     Route: 048
     Dates: start: 2011, end: 20131202

REACTIONS (2)
  - Disease progression [Unknown]
  - Renal cancer [Unknown]
